FAERS Safety Report 4431399-8 (Version None)
Quarter: 2004Q3

REPORT INFORMATION
  Report Type: 
  Country: None (occurrence: None)
  Receive Date: 20040818
  Receipt Date: 20040802
  Transmission Date: 20050211
  Serious: Yes (Death)
  Sender: FDA-Public Use
  Company Number: 01200403642

PATIENT
  Age: 65 Year
  Sex: Female

DRUGS (8)
  1. (CLOPIDOGREL) [Suspect]
     Dosage: 75 MG, QS, ORAL    , TABLET
     Route: 048
     Dates: start: 19991022, end: 19991120
  2. HEPARIN SODIUM [Suspect]
  3. ACETYLSALICYLIC ACID [Concomitant]
  4. DILTIAZEM [Concomitant]
  5. ATENOLOL [Concomitant]
  6. ISOSORBIDE [Concomitant]
  7. NICORANDIL [Concomitant]
  8. PERHEXILLINE [Concomitant]

REACTIONS (2)
  - CARDIAC FAILURE [None]
  - GASTROINTESTINAL HAEMORRHAGE [None]
